FAERS Safety Report 8647374 (Version 3)
Quarter: 2012Q4

REPORT INFORMATION
  Report Type: 
  Country: NO (occurrence: NO)
  Receive Date: 20120703
  Receipt Date: 20120904
  Transmission Date: 20130627
  Serious: No
  Sender: FDA-Public Use
  Company Number: NO-JNJFOC-20120613141

PATIENT
  Age: 73 Year
  Sex: Female

DRUGS (5)
  1. DAKTACORT [Suspect]
     Route: 061
  2. DAKTACORT [Suspect]
     Indication: PRODUCT USED FOR UNKNOWN INDICATION
     Route: 061
  3. DIPROSALIC [Interacting]
     Indication: PRODUCT USED FOR UNKNOWN INDICATION
     Route: 061
  4. LOCOID [Interacting]
     Indication: PRODUCT USED FOR UNKNOWN INDICATION
     Route: 061
  5. MAREVAN [Interacting]
     Indication: PRODUCT USED FOR UNKNOWN INDICATION
     Route: 065

REACTIONS (2)
  - International normalised ratio increased [Recovering/Resolving]
  - Drug interaction [Unknown]
